FAERS Safety Report 14025770 (Version 3)
Quarter: 2018Q1

REPORT INFORMATION
  Report Type: Spontaneous
  Country: US (occurrence: US)
  Receive Date: 20170929
  Receipt Date: 20180228
  Transmission Date: 20180508
  Serious: Yes (Other)
  Sender: FDA-Public Use
  Company Number: US-ROCHE-1998000

PATIENT
  Age: 51 Year
  Sex: Female
  Weight: 54.48 kg

DRUGS (6)
  1. WELLBUTRIN XL [Concomitant]
     Active Substance: BUPROPION HYDROCHLORIDE
     Route: 065
  2. ARAVA [Concomitant]
     Active Substance: LEFLUNOMIDE
  3. FENTANYL. [Concomitant]
     Active Substance: FENTANYL
     Route: 065
  4. RITUXAN [Suspect]
     Active Substance: RITUXIMAB
     Indication: RHEUMATOID ARTHRITIS
  5. RITUXAN [Suspect]
     Active Substance: RITUXIMAB
     Indication: EHLERS-DANLOS SYNDROME
     Route: 042
     Dates: start: 2014
  6. RITUXAN [Suspect]
     Active Substance: RITUXIMAB
     Indication: GRANULOMATOSIS WITH POLYANGIITIS
     Route: 042
     Dates: start: 201309

REACTIONS (11)
  - Prerenal failure [Unknown]
  - Epstein-Barr virus test positive [Unknown]
  - Investigation abnormal [Not Recovered/Not Resolved]
  - Stress [Unknown]
  - Epstein-Barr virus infection [Not Recovered/Not Resolved]
  - Lung disorder [Unknown]
  - Dysstasia [Recovered/Resolved]
  - Dizziness [Recovered/Resolved]
  - Systemic lupus erythematosus [Unknown]
  - Vitamin D decreased [Unknown]
  - Loss of consciousness [Recovered/Resolved]

NARRATIVE: CASE EVENT DATE: 20160329
